FAERS Safety Report 16239041 (Version 1)
Quarter: 2019Q2

REPORT INFORMATION
  Report Type: Spontaneous
  Country: US (occurrence: US)
  Receive Date: 20190425
  Receipt Date: 20190425
  Transmission Date: 20190711
  Serious: No
  Sender: FDA-Public Use
  Company Number: US-SA-2018SA249233

PATIENT
  Sex: Female

DRUGS (17)
  1. LYRICA [Concomitant]
     Active Substance: PREGABALIN
  2. CELLCEPT [Concomitant]
     Active Substance: MYCOPHENOLATE MOFETIL\MYCOPHENOLATE MOFETIL HYDROCHLORIDE
  3. METHYLPREDNIS [Concomitant]
  4. KEVZARA [Suspect]
     Active Substance: SARILUMAB
     Dosage: 200 MG, QOW
     Route: 058
  5. ATENOLOL. [Concomitant]
     Active Substance: ATENOLOL
  6. DIAZEPAM. [Concomitant]
     Active Substance: DIAZEPAM
  7. FIORICET [Concomitant]
     Active Substance: ACETAMINOPHEN\BUTALBITAL\CAFFEINE
  8. VALIUM [Concomitant]
     Active Substance: DIAZEPAM
  9. VITAMIN B12 [Concomitant]
     Active Substance: CYANOCOBALAMIN
  10. TRAMADOL HCL [Concomitant]
     Active Substance: TRAMADOL HYDROCHLORIDE
  11. IMURAN [Concomitant]
     Active Substance: AZATHIOPRINE
  12. AMLODIPINE [Concomitant]
     Active Substance: AMLODIPINE BESYLATE
  13. TRAZODONE HYDROCHLORIDE. [Concomitant]
     Active Substance: TRAZODONE HYDROCHLORIDE
  14. CYCLOBENZAPRIN [Concomitant]
     Active Substance: CYCLOBENZAPRINE
  15. SPIRONOLACTONE. [Concomitant]
     Active Substance: SPIRONOLACTONE
  16. IBUPROFEN. [Concomitant]
     Active Substance: IBUPROFEN
  17. LOSARTAN POTASSIUM. [Concomitant]
     Active Substance: LOSARTAN POTASSIUM

REACTIONS (12)
  - Peripheral coldness [Unknown]
  - Pain in extremity [Unknown]
  - Feeling abnormal [Unknown]
  - Paraesthesia [Unknown]
  - Skin warm [Unknown]
  - Drug ineffective [Unknown]
  - Fatigue [Unknown]
  - Asthenia [Unknown]
  - Neuralgia [Unknown]
  - Anxiety [Unknown]
  - Depressed mood [Unknown]
  - Peripheral swelling [Unknown]
